FAERS Safety Report 10140801 (Version 2)
Quarter: 2014Q2

REPORT INFORMATION
  Report Type: Spontaneous
  Country: US (occurrence: US)
  Receive Date: 20140429
  Receipt Date: 20140429
  Transmission Date: 20141212
  Serious: Yes (Hospitalization, Other)
  Sender: FDA-Public Use
  Company Number: US-JNJFOC-20140316957

PATIENT
  Age: 67 Year
  Sex: Male
  Weight: 100.7 kg

DRUGS (6)
  1. XARELTO [Suspect]
     Indication: EMBOLISM
     Route: 048
     Dates: start: 20140306, end: 20140322
  2. XARELTO [Suspect]
     Indication: THROMBOSIS
     Route: 048
     Dates: start: 20140306, end: 20140322
  3. XARELTO [Suspect]
     Indication: EMBOLISM
     Route: 048
     Dates: start: 20140306, end: 20140322
  4. ASPIRIN [Concomitant]
     Indication: PERIPHERAL VASCULAR DISORDER
     Route: 065
     Dates: start: 20110214
  5. AVODART [Concomitant]
     Indication: BENIGN PROSTATIC HYPERPLASIA
     Route: 065
  6. FINASTERIDE [Concomitant]
     Route: 065

REACTIONS (6)
  - Rash [Recovering/Resolving]
  - Bone pain [Recovering/Resolving]
  - Hypersensitivity [Recovering/Resolving]
  - Red blood cell sedimentation rate increased [Recovering/Resolving]
  - Arthralgia [Recovering/Resolving]
  - Hepatic enzyme increased [Recovering/Resolving]
